FAERS Safety Report 8427214-8 (Version None)
Quarter: 2012Q2

REPORT INFORMATION
  Report Type: 
  Country: None (occurrence: None)
  Receive Date: 20120611
  Receipt Date: 20120531
  Transmission Date: 20120825
  Serious: Yes (Hospitalization)
  Sender: FDA-Public Use
  Company Number: US-GLAXOSMITHKLINE-A0853517A

PATIENT
  Age: 56 Year
  Sex: Male
  Weight: 125 kg

DRUGS (1)
  1. AVANDIA [Suspect]
     Indication: DIABETES MELLITUS
     Dosage: 4MG PER DAY
     Route: 048
     Dates: start: 19990101, end: 20040427

REACTIONS (9)
  - ANHEDONIA [None]
  - MENTAL DISORDER [None]
  - ARRHYTHMIA [None]
  - MYOCARDIAL INFARCTION [None]
  - EJECTION FRACTION DECREASED [None]
  - EMOTIONAL DISORDER [None]
  - LEFT VENTRICULAR HYPERTROPHY [None]
  - CHILLS [None]
  - PYREXIA [None]
